FAERS Safety Report 25466318 (Version 1)
Quarter: 2025Q2

REPORT INFORMATION
  Report Type: Spontaneous
  Country: CA (occurrence: CA)
  Receive Date: 20250623
  Receipt Date: 20250623
  Transmission Date: 20250717
  Serious: Yes (Hospitalization, Other)
  Sender: IPCA
  Company Number: CA-IPCA LABORATORIES LIMITED-IPC-2025-CA-001609

PATIENT

DRUGS (2)
  1. HYDROXYCHLOROQUINE [Suspect]
     Active Substance: HYDROXYCHLOROQUINE
     Indication: Malaria
     Route: 048
  2. AMIODARONE [Concomitant]
     Active Substance: AMIODARONE
     Route: 048

REACTIONS (5)
  - Cardiotoxicity [Unknown]
  - Hypertrophic cardiomyopathy [Unknown]
  - Myocarditis [Unknown]
  - Myocardial ischaemia [Unknown]
  - Systolic dysfunction [Unknown]
